FAERS Safety Report 8508284-5 (Version None)
Quarter: 2012Q3

REPORT INFORMATION
  Report Type: 
  Country: None (occurrence: None)
  Receive Date: 20120713
  Receipt Date: 20120705
  Transmission Date: 20120928
  Serious: Yes (Hospitalization)
  Sender: FDA-Public Use
  Company Number: CA-JNJFOC-20120702615

PATIENT
  Sex: Male
  Weight: 95.26 kg

DRUGS (2)
  1. REMICADE [Suspect]
     Indication: CROHN'S DISEASE
     Route: 042
     Dates: start: 20120501
  2. REMICADE [Suspect]
     Dosage: ONCE IN 6-8 WEEKS
     Route: 042
     Dates: start: 20110726

REACTIONS (3)
  - ABSCESS [None]
  - INFARCTION [None]
  - ANAL FISTULA [None]
